FAERS Safety Report 5036824-X (Version None)
Quarter: 2006Q2

REPORT INFORMATION
  Report Type: 
  Country: None (occurrence: None)
  Receive Date: 20060622
  Receipt Date: 20060605
  Transmission Date: 20061013
  Serious: Yes (Other)
  Sender: FDA-Public Use
  Company Number: US200605002634

PATIENT
  Age: 26 Year
  Sex: Male
  Weight: 56.7 kg

DRUGS (1)
  1. CYMBALTA [Suspect]
     Indication: DEPRESSION
     Dosage: SEE IMAGE
     Dates: start: 20051228

REACTIONS (8)
  - ANURIA [None]
  - DYSURIA [None]
  - HEPATITIS B [None]
  - LYMPHADENOPATHY [None]
  - MONOCYTE PERCENTAGE INCREASED [None]
  - MYALGIA [None]
  - NAUSEA [None]
  - STRESS [None]
